FAERS Safety Report 15644681 (Version 2)
Quarter: 2018Q4

REPORT INFORMATION
  Report Type: Spontaneous
  Country: US (occurrence: US)
  Receive Date: 20181121
  Receipt Date: 20181224
  Transmission Date: 20190205
  Serious: No
  Sender: FDA-Public Use
  Company Number: US-GLAXOSMITHKLINE-US2018203435

PATIENT
  Sex: Female
  Weight: 63.39 kg

DRUGS (2)
  1. ANORO ELLIPTA [Suspect]
     Active Substance: UMECLIDINIUM BROMIDE\VILANTEROL TRIFENATATE
     Indication: CHRONIC OBSTRUCTIVE PULMONARY DISEASE
     Dosage: UNK UNK, U
     Dates: start: 20180808, end: 20181102
  2. VENTOLIN HFA [Suspect]
     Active Substance: ALBUTEROL SULFATE
     Indication: CHRONIC OBSTRUCTIVE PULMONARY DISEASE
     Dosage: UNK UNK, U

REACTIONS (8)
  - Neck pain [Recovered/Resolved]
  - Drug ineffective [Unknown]
  - Speech disorder [Recovered/Resolved]
  - Musculoskeletal pain [Recovered/Resolved]
  - Dyspnoea [Recovered/Resolved]
  - Headache [Recovered/Resolved]
  - Vision blurred [Recovered/Resolved]
  - Paraesthesia [Recovered/Resolved]
